FAERS Safety Report 18214217 (Version 3)
Quarter: 2020Q3

REPORT INFORMATION
  Report Type: Spontaneous
  Country: US (occurrence: US)
  Receive Date: 20200831
  Receipt Date: 20200925
  Transmission Date: 20201103
  Serious: Yes (Other)
  Sender: FDA-Public Use
  Company Number: US-ALLERGAN-2030387US

PATIENT
  Sex: Female

DRUGS (6)
  1. CARAFATE [Suspect]
     Active Substance: SUCRALFATE
     Dosage: UNK
     Route: 048
     Dates: start: 201410
  2. PROTONIX [Suspect]
     Active Substance: PANTOPRAZOLE SODIUM
     Dosage: 40 MG, BID
     Dates: start: 2016, end: 2016
  3. ZOLPIDEM [Suspect]
     Active Substance: ZOLPIDEM TARTRATE
     Indication: PRODUCT USED FOR UNKNOWN INDICATION
     Dosage: 5 MG
  4. PROTONIX [Suspect]
     Active Substance: PANTOPRAZOLE SODIUM
     Indication: ULCER
     Dosage: 40 MG, QAM
     Dates: start: 2016
  5. CARAFATE [Suspect]
     Active Substance: SUCRALFATE
     Indication: ULCER
     Dosage: 10 MG, QID
     Route: 048
     Dates: start: 201604
  6. ZOFRAN [Suspect]
     Active Substance: ONDANSETRON HYDROCHLORIDE
     Indication: NAUSEA
     Dosage: 8 MG, TID
     Route: 048

REACTIONS (3)
  - Melaena [Recovered/Resolved]
  - Asthenia [Unknown]
  - Dyspnoea [Unknown]

NARRATIVE: CASE EVENT DATE: 2014
